FAERS Safety Report 9044214 (Version 1)
Quarter: 2013Q1

REPORT INFORMATION
  Report Type: Report from Study
  Country: US (occurrence: US)
  Receive Date: 20130130
  Receipt Date: 20130130
  Transmission Date: 20140127
  Serious: No
  Sender: FDA-Public Use
  Company Number: US-ABBOTT-12P-163-0955813-00

PATIENT
  Age: 42 Year
  Sex: Female

DRUGS (4)
  1. HUMIRA 40 MG/0.8 ML PEN [Suspect]
     Indication: CROHN^S DISEASE
     Dates: start: 201103
  2. HYDROCORTISONE [Concomitant]
     Indication: ADRENAL DISORDER
  3. SYNTHROID [Concomitant]
     Indication: HYPOTHYROIDISM
  4. IMITREX [Concomitant]
     Indication: MIGRAINE

REACTIONS (5)
  - Wrong technique in drug usage process [Recovering/Resolving]
  - Incorrect dose administered [Recovering/Resolving]
  - Tooth extraction [Recovered/Resolved]
  - Migraine [Not Recovered/Not Resolved]
  - Injection site haemorrhage [Recovering/Resolving]
